FAERS Safety Report 8825066 (Version 2)
Quarter: 2014Q3

REPORT INFORMATION
  Report Type: Report from Study
  Country: US (occurrence: US)
  Receive Date: 20121004
  Receipt Date: 20140822
  Transmission Date: 20150326
  Serious: Yes (Other)
  Sender: FDA-Public Use
  Company Number: US-ROCHE-1132024

PATIENT
  Sex: Female

DRUGS (3)
  1. RITUXAN [Suspect]
     Active Substance: RITUXIMAB
     Indication: COAGULOPATHY
  2. PREDNISONE. [Concomitant]
     Active Substance: PREDNISONE
  3. RITUXAN [Suspect]
     Active Substance: RITUXIMAB
     Indication: FACTOR VIII DEFICIENCY
     Route: 042

REACTIONS (2)
  - Off label use [Unknown]
  - Renal failure acute [Unknown]
